FAERS Safety Report 4938967-5 (Version None)
Quarter: 2006Q1

REPORT INFORMATION
  Report Type: 
  Country: None (occurrence: None)
  Receive Date: 20060309
  Receipt Date: 20050927
  Transmission Date: 20060701
  Serious: Yes (Hospitalization)
  Sender: FDA-Public Use
  Company Number: US-MERCK-0509USA04015

PATIENT
  Age: 74 Year
  Sex: Female
  Weight: 59 kg

DRUGS (3)
  1. FOSAMAX [Suspect]
     Route: 048
     Dates: start: 19971024, end: 20041027
  2. PREMPRO [Concomitant]
     Route: 065
     Dates: start: 19670101
  3. NEXIUM [Concomitant]
     Route: 065

REACTIONS (3)
  - EXOSTOSIS [None]
  - OSTEONECROSIS [None]
  - SPINAL OSTEOARTHRITIS [None]
